FAERS Safety Report 5642579-8 (Version None)
Quarter: 2008Q1

REPORT INFORMATION
  Report Type: 
  Country: None (occurrence: None)
  Receive Date: 20080228
  Receipt Date: 20080221
  Transmission Date: 20080703
  Serious: Yes (Disabling)
  Sender: FDA-Public Use
  Company Number: JP-BRISTOL-MYERS SQUIBB COMPANY-14092613

PATIENT
  Age: 56 Year
  Sex: Female

DRUGS (2)
  1. MITOMYCIN [Suspect]
     Indication: CERVIX CARCINOMA RECURRENT
     Route: 013
     Dates: start: 20080109, end: 20080109
  2. RANDA [Suspect]
     Indication: CERVIX CARCINOMA RECURRENT
     Route: 013
     Dates: start: 20080109, end: 20080109

REACTIONS (1)
  - MYOSITIS [None]
